FAERS Safety Report 23948617 (Version 1)
Quarter: 2024Q2

REPORT INFORMATION
  Report Type: Report from Study
  Country: IN (occurrence: IN)
  Receive Date: 20240607
  Receipt Date: 20240607
  Transmission Date: 20240715
  Serious: Yes (Other)
  Sender: FDA-Public Use
  Company Number: IN-CIPLA LTD.-2024IN04543

PATIENT

DRUGS (7)
  1. SPIRONOLACTONE\TORSEMIDE [Suspect]
     Active Substance: SPIRONOLACTONE\TORSEMIDE
     Indication: Product used for unknown indication
     Dosage: UNK (FREQUENCY - 1 UNITS UNSPECIFIED)
     Route: 048
     Dates: start: 20240425
  2. BUDESONIDE [Suspect]
     Active Substance: BUDESONIDE
     Indication: Product used for unknown indication
     Dosage: 2 PUFFS, FREQUENCY - 2 UNITS UNSPECIFIED
     Route: 048
     Dates: start: 20240425
  3. ALBUTEROL\IPRATROPIUM BROMIDE [Suspect]
     Active Substance: ALBUTEROL\IPRATROPIUM BROMIDE
     Indication: Product used for unknown indication
     Dosage: UNK, FREQUENCY - 2 UNITS UNSPECIFIED
     Route: 048
     Dates: start: 20240425
  4. MET XL [Concomitant]
     Indication: Product used for unknown indication
     Dosage: 25 MILLIGRAM, QD (OD)
     Route: 065
     Dates: start: 20240425
  5. DILTIAZEM [Concomitant]
     Active Substance: DILTIAZEM
     Indication: Product used for unknown indication
     Dosage: 90 MILLIGRAM, QD (OD)
     Route: 065
     Dates: start: 20240425
  6. RIVAFLO [Concomitant]
     Indication: Product used for unknown indication
     Dosage: UNK
     Route: 065
  7. REVATIO OD [Concomitant]
     Indication: Product used for unknown indication
     Dosage: 20 MILLIGRAM, QD (OD)
     Route: 065
     Dates: start: 20240425

REACTIONS (3)
  - Hypersomnia [Not Recovered/Not Resolved]
  - Vomiting [Not Recovered/Not Resolved]
  - Asthenia [Not Recovered/Not Resolved]

NARRATIVE: CASE EVENT DATE: 20240101
